FAERS Safety Report 24378115 (Version 1)
Quarter: 2024Q3

REPORT INFORMATION
  Report Type: Spontaneous
  Country: US (occurrence: US)
  Receive Date: 20240930
  Receipt Date: 20240930
  Transmission Date: 20241017
  Serious: Yes (Other)
  Sender: PFIZER
  Company Number: US-PFIZER INC-202400263904

PATIENT
  Age: 59 Year
  Sex: Female
  Weight: 57.15 kg

DRUGS (7)
  1. IBRANCE [Suspect]
     Active Substance: PALBOCICLIB
     Indication: Bone cancer metastatic
     Dosage: 125 MG
     Dates: start: 202204
  2. IBRANCE [Suspect]
     Active Substance: PALBOCICLIB
     Dosage: 100 MG
     Dates: start: 2022
  3. IBRANCE [Suspect]
     Active Substance: PALBOCICLIB
     Dosage: 75MG CAPSULE; CYCLE 1 CAPSULE PER DAY X 21 DAYS AND 7 DAYS OFF
     Route: 048
     Dates: start: 20240923
  4. FASLODEX [Suspect]
     Active Substance: FULVESTRANT
     Indication: Bone cancer
     Dosage: 500 MG, MONTHLY
  5. FASLODEX [Suspect]
     Active Substance: FULVESTRANT
     Dosage: 500 MG, MONTHLY
     Dates: start: 20240923
  6. NP THYROID [Concomitant]
     Active Substance: LEVOTHYROXINE\LIOTHYRONINE
     Indication: Hypothyroidism
     Dosage: 30MG; TAKES DAILY IN THE MORNING
  7. KISQALI [Concomitant]
     Active Substance: RIBOCICLIB
     Dosage: 600MG TOTAL; TAKE 3 TABLETS DAILY FOR 21 DAYS AND OFF FOR 7 DAYS
     Dates: start: 2024

REACTIONS (7)
  - Neutropenia [Recovering/Resolving]
  - Neuropathy peripheral [Not Recovered/Not Resolved]
  - Myalgia [Not Recovered/Not Resolved]
  - Headache [Not Recovered/Not Resolved]
  - Bone pain [Not Recovered/Not Resolved]
  - Insomnia [Not Recovered/Not Resolved]
  - Impaired quality of life [Unknown]

NARRATIVE: CASE EVENT DATE: 20220101
